FAERS Safety Report 8764954 (Version 1)
Quarter: 2012Q4

REPORT INFORMATION
  Report Type: Report from Study
  Country: DE (occurrence: DE)
  Receive Date: 20120903
  Receipt Date: 20120903
  Transmission Date: 20130627
  Serious: Yes (Hospitalization)
  Sender: FDA-Public Use
  Company Number: DE-BRISTOL-MYERS SQUIBB COMPANY-16880734

PATIENT
  Age: 50 Year
  Sex: Female
  Weight: 79 kg

DRUGS (7)
  1. PACLITAXEL [Suspect]
     Indication: BREAST CANCER
     Dosage: Last dose:09May12
     Route: 042
     Dates: start: 20120502
  2. CARBOPLATIN [Suspect]
     Indication: BREAST CANCER
     Dosage: Last dose is 9MAY12
     Route: 042
     Dates: start: 20120502
  3. BEVACIZUMAB [Suspect]
     Indication: BREAST CANCER
     Route: 042
     Dates: start: 20120502
  4. DOXORUBICIN [Suspect]
     Indication: BREAST CANCER
     Dosage: Last dose on 9MAY12
     Route: 042
     Dates: start: 20120502
  5. DEXAMETHASONE [Concomitant]
     Dates: start: 20120502
  6. RANITIDINE [Concomitant]
     Dates: start: 20120502
  7. GRANISETRON [Concomitant]
     Dates: start: 20120502

REACTIONS (2)
  - General physical health deterioration [Recovered/Resolved]
  - Bradycardia [Recovered/Resolved]
